FAERS Safety Report 12155808 (Version 1)
Quarter: 2016Q1

REPORT INFORMATION
  Report Type: Report from Study
  Country: US (occurrence: US)
  Receive Date: 20160307
  Receipt Date: 20160307
  Transmission Date: 20160526
  Serious: No
  Sender: FDA-Public Use
  Company Number: PHEH2015US000508

PATIENT
  Sex: Female
  Weight: 51.25 kg

DRUGS (1)
  1. GILENYA [Suspect]
     Active Substance: FINGOLIMOD HYDROCHLORIDE
     Indication: MULTIPLE SCLEROSIS
     Dosage: 0.5 MG, QD
     Route: 048
     Dates: start: 20141027

REACTIONS (7)
  - Feeling abnormal [Recovering/Resolving]
  - Limb discomfort [Recovering/Resolving]
  - Stress [Not Recovered/Not Resolved]
  - Migraine [Unknown]
  - Confusional state [Not Recovered/Not Resolved]
  - Fatigue [Recovering/Resolving]
  - Pain [Not Recovered/Not Resolved]
